FAERS Safety Report 9132509 (Version 1)
Quarter: 2013Q1

REPORT INFORMATION
  Report Type: Spontaneous
  Country: ES (occurrence: ES)
  Receive Date: 20130301
  Receipt Date: 20130301
  Transmission Date: 20140127
  Serious: Yes (Hospitalization)
  Sender: FDA-Public Use
  Company Number: ES-GLAXOSMITHKLINE-B0870979A

PATIENT
  Age: 30 Year
  Sex: Female

DRUGS (1)
  1. REVOLADE [Suspect]
     Indication: IDIOPATHIC THROMBOCYTOPENIC PURPURA
     Dosage: 25MG PER DAY
     Route: 048
     Dates: start: 20130205, end: 20130212

REACTIONS (5)
  - Transient ischaemic attack [Recovered/Resolved]
  - Hemianopia [Recovered/Resolved]
  - Hyperaesthesia [Recovered/Resolved]
  - Nervousness [Unknown]
  - Insomnia [Unknown]
